FAERS Safety Report 23348917 (Version 1)
Quarter: 2023Q4

REPORT INFORMATION
  Report Type: Spontaneous
  Country: US (occurrence: US)
  Receive Date: 20231229
  Receipt Date: 20231229
  Transmission Date: 20240110
  Serious: Yes (Other)
  Sender: FDA-Public Use
  Company Number: US-TEVA-VS-3136579

PATIENT
  Age: 59 Year

DRUGS (2)
  1. AUSTEDO [Suspect]
     Active Substance: DEUTETRABENAZINE
     Indication: Tardive dyskinesia
     Dosage: START DATE: JUL OR AUG 2021
     Route: 048
     Dates: start: 202107
  2. BIKTARVY [Concomitant]
     Active Substance: BICTEGRAVIR SODIUM\EMTRICITABINE\TENOFOVIR ALAFENAMIDE FUMARATE
     Indication: Acquired immunodeficiency syndrome

REACTIONS (7)
  - Mental impairment [Unknown]
  - Insomnia [Unknown]
  - Intentional self-injury [Unknown]
  - Speech disorder [Unknown]
  - Memory impairment [Unknown]
  - Abdominal discomfort [Unknown]
  - Fall [Unknown]
